FAERS Safety Report 4924310-4 (Version None)
Quarter: 2006Q1

REPORT INFORMATION
  Report Type: 
  Country: None (occurrence: None)
  Receive Date: 20060227
  Receipt Date: 20060109
  Transmission Date: 20060701
  Serious: No
  Sender: FDA-Public Use
  Company Number: 431383

PATIENT
  Age: 61 Year
  Sex: Female

DRUGS (13)
  1. WELLBUTRIN XL [Suspect]
     Indication: DEPRESSION
     Dosage: 300MG PER DAY
     Route: 048
  2. COREG [Suspect]
     Indication: HYPERTENSION
     Dosage: 12.5MG TWICE PER DAY
     Route: 048
     Dates: start: 20050101
  3. DIFLUCAN [Concomitant]
  4. CALCIUM CITRATE [Concomitant]
  5. MAGNESIUM CITRATE [Concomitant]
  6. MULTI-VITAMIN [Concomitant]
  7. MAXZIDE [Concomitant]
  8. CALTRATE [Concomitant]
  9. FISH OIL [Concomitant]
  10. ASCORBIC ACID [Concomitant]
  11. LYSINE [Concomitant]
  12. DIOVAN [Concomitant]
  13. ZETIA [Concomitant]

REACTIONS (5)
  - BLOOD CHOLESTEROL INCREASED [None]
  - CONSTIPATION [None]
  - HYPOTENSION [None]
  - MOUTH ULCERATION [None]
  - RESTLESS LEGS SYNDROME [None]
